FAERS Safety Report 6485774-0 (Version None)
Quarter: 2009Q4

REPORT INFORMATION
  Report Type: 
  Country: None (occurrence: None)
  Receive Date: 20091207
  Receipt Date: 20091202
  Transmission Date: 20100525
  Serious: Yes (Death, Hospitalization)
  Sender: FDA-Public Use
  Company Number: 2009019241

PATIENT
  Age: 24 Year
  Sex: Male
  Weight: 63 kg

DRUGS (9)
  1. TRISENOX [Suspect]
     Indication: ACUTE MYELOID LEUKAEMIA
     Dosage: (DAY 1 THRU 5 QW), INTRAVENOUS DRIP
     Route: 041
     Dates: start: 20091013, end: 20091017
  2. TRISENOX [Suspect]
     Indication: ACUTE MYELOID LEUKAEMIA
     Dosage: (DAY 1 THRU 5 QW), INTRAVENOUS DRIP
     Route: 041
     Dates: start: 20091019, end: 20091019
  3. TRISENOX [Suspect]
     Indication: ACUTE MYELOID LEUKAEMIA
     Dosage: (DAY 1 THRU 5 QW), INTRAVENOUS DRIP
     Route: 041
     Dates: start: 20091026, end: 20091026
  4. TRISENOX [Suspect]
     Indication: ACUTE MYELOID LEUKAEMIA
     Dosage: (DAY 1 THRU 5 QW), INTRAVENOUS DRIP
     Route: 041
     Dates: start: 20091102, end: 20091102
  5. DECITABINE (DECITABINE) (20 MILLIGRAM(S) / KILOGRAM(S) /SQ. METER) [Suspect]
     Indication: ACUTE MYELOID LEUKAEMIA
     Dosage: (DAY 1-5), INTRAVENOUS
     Route: 042
     Dates: start: 20091013, end: 20091017
  6. ASCORBIC ACID [Suspect]
     Indication: ACUTE MYELOID LEUKAEMIA
     Dosage: (1000 MG, DAY 1-5), INTRAVENOUS
     Route: 042
     Dates: start: 20091013, end: 20091017
  7. ASCORBIC ACID [Suspect]
     Indication: ACUTE MYELOID LEUKAEMIA
     Dosage: (1000 MG, DAY 1-5), INTRAVENOUS
     Route: 042
     Dates: start: 20091019, end: 20091019
  8. ASCORBIC ACID [Suspect]
     Indication: ACUTE MYELOID LEUKAEMIA
     Dosage: (1000 MG, DAY 1-5), INTRAVENOUS
     Route: 042
     Dates: start: 20091026, end: 20091026
  9. ASCORBIC ACID [Suspect]
     Indication: ACUTE MYELOID LEUKAEMIA
     Dosage: (1000 MG, DAY 1-5), INTRAVENOUS
     Route: 042
     Dates: start: 20091102, end: 20091102

REACTIONS (10)
  - ACUTE MYELOID LEUKAEMIA [None]
  - ARTHRALGIA [None]
  - DYSPNOEA [None]
  - GENERAL PHYSICAL HEALTH DETERIORATION [None]
  - MALIGNANT NEOPLASM PROGRESSION [None]
  - MUSCULAR WEAKNESS [None]
  - MYALGIA [None]
  - PNEUMONIA [None]
  - RESPIRATORY FAILURE [None]
  - SEPTIC SHOCK [None]
